FAERS Safety Report 23264890 (Version 1)
Quarter: 2023Q4

REPORT INFORMATION
  Report Type: Spontaneous
  Country: US (occurrence: None)
  Receive Date: 20231206
  Receipt Date: 20231206
  Transmission Date: 20240109
  Serious: No
  Sender: FDA-Public Use
  Company Number: US-Encube-000534

PATIENT
  Age: 64 Year
  Sex: Female

DRUGS (8)
  1. DICLOFENAC SODIUM [Suspect]
     Active Substance: DICLOFENAC\DICLOFENAC SODIUM
     Indication: Osteoarthritis
     Dosage: USED IT ONLY WHEN SHE HAD BAD PAIN
     Dates: end: 202311
  2. GABAPENTIN [Concomitant]
     Active Substance: GABAPENTIN
  3. HYDROCORTISONE [Concomitant]
     Active Substance: HYDROCORTISONE
  4. AMLODIPINE BESYLATE [Concomitant]
     Active Substance: AMLODIPINE BESYLATE
  5. VITAMIN D [Concomitant]
     Active Substance: VITAMIN D NOS
  6. ERGOCALCIFEROL [Concomitant]
     Active Substance: ERGOCALCIFEROL
  7. TIZANIDINE HYDROCHLORIDE [Concomitant]
     Active Substance: TIZANIDINE HYDROCHLORIDE
  8. ASPIRIN [Concomitant]
     Active Substance: ASPIRIN
     Indication: Cerebrovascular accident

REACTIONS (5)
  - Rash [Unknown]
  - Application site discolouration [Unknown]
  - Application site dryness [Unknown]
  - Product use issue [Unknown]
  - Product use in unapproved indication [Unknown]

NARRATIVE: CASE EVENT DATE: 20231101
